FAERS Safety Report 7582242-X (Version None)
Quarter: 2011Q2

REPORT INFORMATION
  Report Type: 
  Country: None (occurrence: None)
  Receive Date: 20110622
  Receipt Date: 20110609
  Transmission Date: 20111010
  Serious: Yes (Hospitalization)
  Sender: FDA-Public Use
  Company Number: 2011125790

PATIENT
  Age: 63 Year
  Sex: Female

DRUGS (9)
  1. NORVASC [Suspect]
     Indication: ESSENTIAL HYPERTENSION
     Dosage: 5 MG, 1X/DAY, ORAL
     Route: 048
     Dates: start: 20110427, end: 20110517
  2. FRAGMIN [Suspect]
     Indication: ATRIAL FIBRILLATION
     Dosage: 2800 IU, 1X/DAY, SUBCUTANEOUS
     Route: 058
     Dates: start: 20110427, end: 20110517
  3. CORDARONE [Suspect]
     Indication: ATRIAL FIBRILLATION
     Dosage: 200 MG, 1X/DAY, ORAL
     Route: 048
     Dates: start: 20110427, end: 20110517
  4. COVERSUM (PERINDOPRIL) [Suspect]
     Indication: ESSENTIAL HYPERTENSION
     Dosage: ORAL
     Route: 048
     Dates: start: 20110427, end: 20110517
  5. ALLOPUR (ALLOPURINOL) [Concomitant]
  6. NOVALGIN (METAZMIZOLE SODIUM) [Concomitant]
  7. BILOL (BISOPROLOL FUMARATE) [Concomitant]
  8. MARCUMAR [Concomitant]
  9. TORAMID (TORASEMIDE) [Concomitant]

REACTIONS (2)
  - RASH [None]
  - PANNICULITIS [None]
